FAERS Safety Report 7805544-8 (Version None)
Quarter: 2011Q4

REPORT INFORMATION
  Report Type: 
  Country: None (occurrence: None)
  Receive Date: 20111010
  Receipt Date: 20110929
  Transmission Date: 20120403
  Serious: Yes (Hospitalization)
  Sender: FDA-Public Use
  Company Number: JP-ASTRAZENECA-2011SE30117

PATIENT
  Age: 80 Year
  Sex: Female
  Weight: 47 kg

DRUGS (3)
  1. LEVOTHYROXINE SODIUM [Concomitant]
     Indication: THYROID CANCER
     Route: 048
     Dates: start: 19940101
  2. PROHEPARUM [Concomitant]
     Indication: LIVER DISORDER
     Route: 048
     Dates: start: 20110416, end: 20110418
  3. IRESSA [Suspect]
     Indication: LUNG ADENOCARCINOMA
     Route: 048
     Dates: start: 20110301, end: 20110418

REACTIONS (2)
  - INTERSTITIAL LUNG DISEASE [None]
  - PULMONARY HAEMORRHAGE [None]
